FAERS Safety Report 7893787-7 (Version None)
Quarter: 2011Q4

REPORT INFORMATION
  Report Type: 
  Country: None (occurrence: None)
  Receive Date: 20111104
  Receipt Date: 20111027
  Transmission Date: 20120403
  Serious: Yes (Other)
  Sender: FDA-Public Use
  Company Number: US-US-EMD SERONO, INC.-7092475

PATIENT
  Sex: Male

DRUGS (1)
  1. REBIF [Suspect]
     Indication: PRODUCT USED FOR UNKNOWN INDICATION
     Route: 058
     Dates: start: 20110131

REACTIONS (7)
  - MYALGIA [None]
  - INJECTION SITE ERYTHEMA [None]
  - BIPOLAR I DISORDER [None]
  - INJECTION SITE PAIN [None]
  - INJECTION SITE PRURITUS [None]
  - ANXIETY [None]
  - INJECTION SITE EXFOLIATION [None]
